FAERS Safety Report 8187472-4 (Version None)
Quarter: 2012Q1

REPORT INFORMATION
  Report Type: 
  Country: None (occurrence: None)
  Receive Date: 20120302
  Receipt Date: 20120215
  Transmission Date: 20120608
  Serious: Yes (Hospitalization, Other)
  Sender: FDA-Public Use
  Company Number: NSR_00500_2012

PATIENT
  Age: 79 Year
  Sex: Female

DRUGS (4)
  1. DIAZEPAM [Concomitant]
  2. LEVOTHYROXINE SODIUM [Concomitant]
  3. RANITIDINE [Concomitant]
  4. FLUOXETINE [Suspect]
     Indication: DEPRESSION
     Dosage: (60 MG QD), (40 MG QD)

REACTIONS (6)
  - MELAENA [None]
  - OESOPHAGITIS [None]
  - GASTROINTESTINAL HAEMORRHAGE [None]
  - HAEMOGLOBIN DECREASED [None]
  - PLATELET DISORDER [None]
  - DIVERTICULUM [None]
